FAERS Safety Report 14457418 (Version 2)
Quarter: 2018Q4

REPORT INFORMATION
  Report Type: Spontaneous
  Country: US (occurrence: US)
  Receive Date: 20180130
  Receipt Date: 20181009
  Transmission Date: 20190204
  Serious: No
  Sender: FDA-Public Use
  Company Number: US-PFIZER INC-2018034640

PATIENT
  Age: 55 Year
  Sex: Male
  Weight: 127 kg

DRUGS (2)
  1. LYRICA [Suspect]
     Active Substance: PREGABALIN
     Indication: NEURALGIA
     Dosage: 200 MG, 3X/DAY (200MG 3 TIMES A DAY)
     Dates: end: 201712
  2. LYRICA [Suspect]
     Active Substance: PREGABALIN
     Dosage: 200 MG, 2X/DAY (200 MG CAPSULES BY MOUTH TWICE A DAY)
     Route: 048
     Dates: start: 201712

REACTIONS (5)
  - Contusion [Recovering/Resolving]
  - Vision blurred [Unknown]
  - Aggression [Recovering/Resolving]
  - Product prescribing error [Unknown]
  - Memory impairment [Not Recovered/Not Resolved]

NARRATIVE: CASE EVENT DATE: 201712
